FAERS Safety Report 8690790 (Version 2)
Quarter: 2013Q4

REPORT INFORMATION
  Report Type: Spontaneous
  Country: CL (occurrence: CL)
  Receive Date: 20120728
  Receipt Date: 20131031
  Transmission Date: 20140711
  Serious: Yes (Hospitalization)
  Sender: FDA-Public Use
  Company Number: CL-009507513-1207CHL009047

PATIENT
  Age: 19 Year
  Sex: Female

DRUGS (1)
  1. IMPLANON [Suspect]
     Indication: CONTRACEPTION
     Dosage: 25-70 MICROGRAMS DAILY, TRIENNIAL
     Route: 059
     Dates: start: 20120525

REACTIONS (5)
  - Malaise [Unknown]
  - Dyspnoea [Unknown]
  - Tachycardia [Unknown]
  - Dizziness [Unknown]
  - Vomiting [Unknown]
